FAERS Safety Report 9276181 (Version 1)
Quarter: 2013Q1

REPORT INFORMATION
  Report Type: Spontaneous
  Country: GB (occurrence: None)
  Receive Date: 20121109
  Receipt Date: 20121109
  Transmission Date: 20140127
  Serious: Yes (Hospitalization)
  Sender: FDA-Public Use
  Company Number: 2012S1000110

PATIENT
  Age: 53 Year
  Sex: Male

DRUGS (3)
  1. CUBICIN (DAPTOMYCIN) [Suspect]
     Indication: ENDOCARDITIS
     Route: 042
  2. VANCOMYCIN [Concomitant]
  3. CEFTRIAXONE [Concomitant]

REACTIONS (1)
  - Cardiac failure [None]
